FAERS Safety Report 4563696-X (Version None)
Quarter: 2005Q1

REPORT INFORMATION
  Report Type: 
  Country: None (occurrence: None)
  Receive Date: 20050125
  Receipt Date: 20050110
  Transmission Date: 20050727
  Serious: Yes (Hospitalization, Other)
  Sender: FDA-Public Use
  Company Number: 2005S1000113

PATIENT
  Age: 48 Year
  Sex: Female

DRUGS (5)
  1. APO-GO (APOMORPHINE HCL) [Suspect]
     Indication: PARKINSON'S DISEASE
     Dosage: 630 MG/QD, IV
     Route: 042
  2. LEVODOPA/BENSERAZIDE [Concomitant]
  3. LEVODOPA/BENSERAZIDE SUSTAINED RELEASE [Concomitant]
  4. QUETIAPINE [Concomitant]
  5. PANTOPRAZOLE [Concomitant]

REACTIONS (4)
  - DRUG ABUSER [None]
  - DYSKINESIA [None]
  - MENTAL DISORDER [None]
  - PAIN [None]
